FAERS Safety Report 8632479 (Version 3)
Quarter: 2014Q2

REPORT INFORMATION
  Report Type: Spontaneous
  Country: US (occurrence: US)
  Receive Date: 20120625
  Receipt Date: 20140630
  Transmission Date: 20141212
  Serious: Yes (Hospitalization, Other)
  Sender: FDA-Public Use
  Company Number: US-BAYER-2012-060993

PATIENT
  Age: 42 Year
  Sex: Female
  Weight: 108.84 kg

DRUGS (4)
  1. OCELLA [Suspect]
     Indication: ACNE
     Dosage: UNK
     Dates: start: 200808, end: 201202
  2. OCELLA [Suspect]
     Indication: CONTRACEPTION
  3. OCELLA [Suspect]
     Indication: PREMENSTRUAL DYSPHORIC DISORDER
  4. OCELLA [Suspect]
     Indication: PREMENSTRUAL SYNDROME

REACTIONS (5)
  - Pulmonary embolism [None]
  - Deep vein thrombosis [None]
  - Cholelithiasis [None]
  - Injury [None]
  - Pain [None]
